FAERS Safety Report 9466658 (Version 2)
Quarter: 2013Q4

REPORT INFORMATION
  Report Type: Spontaneous
  Country: CA (occurrence: CA)
  Receive Date: 20130820
  Receipt Date: 20131007
  Transmission Date: 20140711
  Serious: Yes (Other)
  Sender: FDA-Public Use
  Company Number: CA-BRISTOL-MYERS SQUIBB COMPANY-19186782

PATIENT
  Age: 26 Year
  Sex: Female

DRUGS (1)
  1. ABILIFY [Suspect]
     Indication: PSYCHOTIC DISORDER
     Dosage: STARTED ON ABILIFY 2MG, THEN INCREASED TO 4MG, THEN INCREASED TO 8MG
     Route: 048
     Dates: start: 201306

REACTIONS (1)
  - Mania [Recovering/Resolving]
